FAERS Safety Report 5033908-7 (Version None)
Quarter: 2006Q2

REPORT INFORMATION
  Report Type: 
  Country: None (occurrence: None)
  Receive Date: 20060623
  Receipt Date: 20060620
  Transmission Date: 20061013
  Serious: Yes (Death)
  Sender: FDA-Public Use
  Company Number: RO-ABBOTT-06P-135-0336388-00

PATIENT
  Age: 7 Year
  Sex: Male
  Weight: 10 kg

DRUGS (1)
  1. KALETRA [Suspect]
     Indication: HIV INFECTION
     Route: 048
     Dates: start: 20041203

REACTIONS (1)
  - DEATH [None]
